FAERS Safety Report 19012415 (Version 1)
Quarter: 2021Q1

REPORT INFORMATION
  Report Type: Spontaneous
  Country: US (occurrence: US)
  Receive Date: 20210316
  Receipt Date: 20210316
  Transmission Date: 20210420
  Serious: No
  Sender: FDA-Public Use
  Company Number: None

PATIENT
  Age: 53 Year
  Sex: Female
  Weight: 69.3 kg

DRUGS (3)
  1. XIIDRA [Suspect]
     Active Substance: LIFITEGRAST
     Indication: DRY EYE
     Dosage: ?          QUANTITY:1 DROP(S);?
     Route: 047
     Dates: start: 20210305, end: 20210316
  2. IBUPROFEN. [Concomitant]
     Active Substance: IBUPROFEN
  3. MVI [Concomitant]
     Active Substance: VITAMINS

REACTIONS (5)
  - Eyelid skin dryness [None]
  - Eyelid irritation [None]
  - Erythema of eyelid [None]
  - Eye irritation [None]
  - Vision blurred [None]

NARRATIVE: CASE EVENT DATE: 20210309
